FAERS Safety Report 8371876-0 (Version None)
Quarter: 2012Q2

REPORT INFORMATION
  Report Type: 
  Country: None (occurrence: None)
  Receive Date: 20120518
  Receipt Date: 20120515
  Transmission Date: 20120825
  Serious: Yes (Other)
  Sender: FDA-Public Use
  Company Number: FR-ROCHE-1059468

PATIENT
  Sex: Female

DRUGS (11)
  1. PREDNISONE [Concomitant]
     Indication: RHEUMATOID ARTHRITIS
  2. NEXIUM [Concomitant]
     Indication: GASTRITIS
  3. ZOLPIDEM TARTRATE [Concomitant]
  4. PROPANOLOLI HYDROCHLORIDUM [Concomitant]
     Route: 048
  5. XYZAL [Concomitant]
     Indication: RHINITIS ALLERGIC
     Route: 048
  6. VITAMIN A CREME [Concomitant]
     Route: 047
  7. ACTEMRA [Suspect]
     Indication: RHEUMATOID ARTHRITIS
     Dates: start: 20111215, end: 20120209
  8. COVERAM [Concomitant]
     Indication: HYPERTENSION
     Dosage: 5/10 MG 1 DOSE IN THE MORNING
     Route: 021
  9. LASIX [Concomitant]
     Indication: HYPERTENSION
  10. ALENDRONATE SODIUM [Concomitant]
  11. POTASSIUM CHLORIDE [Concomitant]
     Route: 048

REACTIONS (1)
  - PULMONARY FIBROSIS [None]
